FAERS Safety Report 14443746 (Version 1)
Quarter: 2018Q1

REPORT INFORMATION
  Report Type: Spontaneous
  Country: ID (occurrence: ID)
  Receive Date: 20180125
  Receipt Date: 20180125
  Transmission Date: 20180509
  Serious: Yes (Death, Other)
  Sender: FDA-Public Use
  Company Number: ID-ABBVIE-18P-079-2236686-00

PATIENT
  Age: 26 Year
  Sex: Male

DRUGS (7)
  1. PHENYTOIN. [Suspect]
     Active Substance: PHENYTOIN
     Indication: SEIZURE
     Route: 065
  2. CARBAMAZEPINE. [Suspect]
     Active Substance: CARBAMAZEPINE
     Indication: SEIZURE
     Route: 065
  3. CLOBAZAM [Suspect]
     Active Substance: CLOBAZAM
     Indication: SEIZURE
     Route: 065
  4. VALPROATE SODIUM. [Suspect]
     Active Substance: VALPROATE SODIUM
     Indication: SUICIDE ATTEMPT
  5. PHENYTOIN. [Suspect]
     Active Substance: PHENYTOIN
     Indication: SUICIDE ATTEMPT
  6. CLOBAZAM [Suspect]
     Active Substance: CLOBAZAM
     Indication: SUICIDE ATTEMPT
  7. VALPROATE SODIUM. [Suspect]
     Active Substance: VALPROATE SODIUM
     Indication: SEIZURE
     Route: 065

REACTIONS (2)
  - Drug resistance [Unknown]
  - Completed suicide [Fatal]
